FAERS Safety Report 5008849-1 (Version None)
Quarter: 2006Q2

REPORT INFORMATION
  Report Type: 
  Country: None (occurrence: None)
  Receive Date: 20060519
  Receipt Date: 20060512
  Transmission Date: 20061013
  Serious: Yes (Hospitalization)
  Sender: FDA-Public Use
  Company Number: 2006041536

PATIENT
  Age: 85 Year
  Sex: Female
  Weight: 64.4108 kg

DRUGS (7)
  1. SUDAFED 12 HOUR [Suspect]
     Indication: NASOPHARYNGITIS
     Dosage: ONE TABLET ONE TIME,ORAL
     Route: 048
     Dates: start: 20060324, end: 20060324
  2. ETHANOL (ETHANOL) [Suspect]
     Indication: FEELING COLD
     Dosage: 1 DRINK, ORAL
     Route: 048
     Dates: start: 20060324, end: 20060324
  3. CHEMOTHERAPY NOS (CHEMOTHERAPY NOS) [Suspect]
     Indication: NEOPLASM MALIGNANT
     Dosage: EVERY TUESDAY
     Dates: start: 20040101
  4. PYRIDOXINE HCL [Concomitant]
  5. MULTIVITAMINS (ASCORBIC ACID, ERGOCALCIFEROL, FOLIC ACID, NICOTINAMIDE [Concomitant]
  6. ATENOLOL [Concomitant]
  7. ASPIRIN [Concomitant]

REACTIONS (4)
  - ALCOHOL USE [None]
  - ATRIAL FIBRILLATION [None]
  - BLOOD PRESSURE INCREASED [None]
  - TREMOR [None]
